FAERS Safety Report 12804520 (Version 1)
Quarter: 2016Q4

REPORT INFORMATION
  Report Type: Spontaneous
  Country: DE (occurrence: DE)
  Receive Date: 20161003
  Receipt Date: 20161003
  Transmission Date: 20170207
  Serious: Yes (Death)
  Sender: FDA-Public Use
  Company Number: DE-TEIKOKU PHARMA USA-TPU2016-00639

PATIENT
  Age: 80 Year
  Sex: Female

DRUGS (1)
  1. VERSATIS [Suspect]
     Active Substance: LIDOCAINE
     Indication: MUSCULOSKELETAL PAIN
     Route: 061

REACTIONS (2)
  - Cardiac disorder [None]
  - Product use issue [None]
